FAERS Safety Report 7540900-7 (Version None)
Quarter: 2011Q2

REPORT INFORMATION
  Report Type: 
  Country: None (occurrence: None)
  Receive Date: 20110610
  Receipt Date: 20110603
  Transmission Date: 20111010
  Serious: Yes (Other)
  Sender: FDA-Public Use
  Company Number: IE-PFIZER INC-2011112514

PATIENT
  Age: 9 Year
  Sex: Male

DRUGS (1)
  1. BENEFIX [Suspect]

REACTIONS (2)
  - RASH [None]
  - HYPERSENSITIVITY [None]
